FAERS Safety Report 19930529 (Version 3)
Quarter: 2025Q2

REPORT INFORMATION
  Report Type: Spontaneous
  Country: FR (occurrence: FR)
  Receive Date: 20211008
  Receipt Date: 20250602
  Transmission Date: 20250716
  Serious: Yes (Other)
  Sender: AUROBINDO
  Company Number: FR-SA-2021SA304069

PATIENT
  Age: 48 Year
  Sex: Female

DRUGS (3)
  1. TRANEXAMIC ACID [Suspect]
     Active Substance: TRANEXAMIC ACID
     Indication: Hereditary angioedema
     Route: 065
  2. PROGESTERONE [Suspect]
     Active Substance: PROGESTERONE
     Indication: Hereditary angioedema
     Route: 065
  3. CONESTAT ALFA [Concomitant]
     Active Substance: CONESTAT ALFA
     Indication: Prophylaxis
     Route: 042

REACTIONS (2)
  - Acute abdomen [Recovered/Resolved]
  - Product use in unapproved indication [Recovered/Resolved]
